FAERS Safety Report 7793776-7 (Version None)
Quarter: 2011Q4

REPORT INFORMATION
  Report Type: 
  Country: None (occurrence: None)
  Receive Date: 20111003
  Receipt Date: 20110921
  Transmission Date: 20120403
  Serious: Yes (Disabling)
  Sender: FDA-Public Use
  Company Number: PHFR2011GB05468

PATIENT
  Age: 71 Year
  Sex: Female

DRUGS (8)
  1. METFORMIN HCL [Concomitant]
     Dosage: UNK
     Route: 065
  2. LISINOPRIL [Concomitant]
     Dosage: UNK
     Route: 065
  3. WARFARIN SODIUM [Concomitant]
     Dosage: UNK
     Route: 065
  4. GLEEVEC [Suspect]
     Indication: GASTROINTESTINAL NEOPLASM
     Dosage: 400 MG, QD
     Route: 048
     Dates: start: 20110303, end: 20110629
  5. BISOPROLOL [Concomitant]
     Dosage: UNK
     Route: 065
  6. FUROSEMIDE [Concomitant]
     Dosage: UNK
     Route: 065
  7. SIMVASTATIN [Concomitant]
     Dosage: UNK
     Route: 065
  8. ALBUTEROL [Concomitant]
     Dosage: UNK
     Route: 065

REACTIONS (6)
  - FATIGUE [None]
  - RENAL IMPAIRMENT [None]
  - FLUID RETENTION [None]
  - EXERCISE TOLERANCE DECREASED [None]
  - PULMONARY HYPERTENSION [None]
  - DYSPNOEA [None]
